FAERS Safety Report 18232000 (Version 3)
Quarter: 2020Q3

REPORT INFORMATION
  Report Type: Spontaneous
  Country: AU (occurrence: AU)
  Receive Date: 20200904
  Receipt Date: 20200921
  Transmission Date: 20201103
  Serious: Yes (Death, Hospitalization, Other)
  Sender: FDA-Public Use
  Company Number: AU-PFIZER INC-2020341714

PATIENT
  Age: 49 Year
  Sex: Male
  Weight: 78 kg

DRUGS (6)
  1. MESALAZINE [Concomitant]
     Active Substance: MESALAMINE
     Indication: COLITIS ULCERATIVE
     Dosage: 48 G, DAILY
     Route: 048
  2. FUROSEMIDE. [Concomitant]
     Active Substance: FUROSEMIDE
     Indication: ASCITES
     Dosage: 40 MG, DAILY
     Route: 048
     Dates: start: 2017
  3. ENOXAPARINE [Concomitant]
     Active Substance: ENOXAPARIN
     Indication: PORTAL VEIN THROMBOSIS
     Dosage: 40 MG, 2X/DAY
     Route: 058
     Dates: start: 2015
  4. USTEKINUMAB [Concomitant]
     Active Substance: USTEKINUMAB
     Indication: COLITIS ULCERATIVE
     Dosage: 390 MG, 1X/DAY
     Route: 042
     Dates: start: 202007
  5. XELJANZ [Suspect]
     Active Substance: TOFACITINIB CITRATE
     Indication: COLITIS ULCERATIVE
     Dosage: 5 MG, 2X/DAY
     Route: 048
     Dates: start: 201910, end: 202008
  6. SPIRONOLACTONE. [Concomitant]
     Active Substance: SPIRONOLACTONE
     Indication: ASCITES
     Dosage: 100 MG, DAILY
     Route: 048
     Dates: start: 2017

REACTIONS (6)
  - Condition aggravated [Fatal]
  - Ileus [Fatal]
  - Peritoneal neoplasm [Fatal]
  - Abdominal pain [Fatal]
  - Tumour lysis syndrome [Fatal]
  - Ascites [Fatal]

NARRATIVE: CASE EVENT DATE: 20200803
